FAERS Safety Report 26022537 (Version 1)
Quarter: 2025Q4

REPORT INFORMATION
  Report Type: Report from Study
  Country: US (occurrence: US)
  Receive Date: 20251110
  Receipt Date: 20251110
  Transmission Date: 20260118
  Serious: Yes (Hospitalization, Other)
  Sender: TAKEDA
  Company Number: US-TAKEDA-2025TUS097125

PATIENT
  Sex: Male

DRUGS (1)
  1. IXAZOMIB [Suspect]
     Active Substance: IXAZOMIB
     Indication: Product used for unknown indication
     Dosage: 3 MILLIGRAM

REACTIONS (7)
  - Muscle spasms [Unknown]
  - Vomiting [Unknown]
  - Small intestinal obstruction [Unknown]
  - Pneumonia [Unknown]
  - Hypotension [Unknown]
  - Red blood cell count decreased [Unknown]
  - Alopecia [Unknown]
